FAERS Safety Report 13024308 (Version 1)
Quarter: 2016Q4

REPORT INFORMATION
  Report Type: Spontaneous
  Country: FR (occurrence: FR)
  Receive Date: 20161213
  Receipt Date: 20161213
  Transmission Date: 20170207
  Serious: Yes (Life-Threatening, Hospitalization)
  Sender: FDA-Public Use
  Company Number: FR-PFIZER INC-2575227

PATIENT
  Age: 50 Year
  Sex: Male

DRUGS (2)
  1. ATRACURIUM BESILATE [Suspect]
     Active Substance: ATRACURIUM BESYLATE
     Dosage: 50 MG, SINGLE
     Route: 042
     Dates: start: 20140811, end: 20140811
  2. DEBRIDAT [Suspect]
     Active Substance: TRIMEBUTINE MALEATE
     Dosage: UNK
     Route: 030
     Dates: start: 20140811

REACTIONS (4)
  - Respiratory arrest [Recovered/Resolved]
  - Product label confusion [Recovered/Resolved]
  - Wrong drug administered [Recovered/Resolved]
  - Circumstance or information capable of leading to medication error [Recovered/Resolved]

NARRATIVE: CASE EVENT DATE: 20140811
